FAERS Safety Report 18545087 (Version 1)
Quarter: 2020Q4

REPORT INFORMATION
  Report Type: Spontaneous
  Country: US (occurrence: US)
  Receive Date: 20201125
  Receipt Date: 20201125
  Transmission Date: 20210114
  Serious: Yes (Hospitalization)
  Sender: FDA-Public Use
  Company Number: None

PATIENT
  Sex: Female
  Weight: 77.6 kg

DRUGS (1)
  1. OLANZAPINE. [Suspect]
     Active Substance: OLANZAPINE
     Indication: PRODUCT USED FOR UNKNOWN INDICATION
     Dates: end: 20201009

REACTIONS (5)
  - Mitral valve incompetence [None]
  - Lung infiltration [None]
  - Pulmonary oedema [None]
  - Oedema peripheral [None]
  - Atelectasis [None]

NARRATIVE: CASE EVENT DATE: 20201022
